FAERS Safety Report 24429854 (Version 1)
Quarter: 2024Q4

REPORT INFORMATION
  Report Type: Spontaneous
  Country: US (occurrence: US)
  Receive Date: 20241012
  Receipt Date: 20241012
  Transmission Date: 20250114
  Serious: No
  Sender: CELLTRION
  Company Number: US-MMM-AXO7KRS3

PATIENT

DRUGS (2)
  1. INFLECTRA [Suspect]
     Active Substance: INFLIXIMAB-DYYB
     Indication: Colitis ulcerative
     Dosage: 500 MILLIGRAMS, EVERY TWO MONTHS
     Route: 042
     Dates: start: 2023
  2. INFLECTRA [Suspect]
     Active Substance: INFLIXIMAB-DYYB
     Dosage: 500 MILLIGRAMS, EVERY TWO MONTHS (RIGHT ARM IN VEIN)
     Route: 042
     Dates: start: 20240813

REACTIONS (2)
  - Arthralgia [Unknown]
  - Overdose [Unknown]
